FAERS Safety Report 6711319-3 (Version None)
Quarter: 2010Q2

REPORT INFORMATION
  Report Type: 
  Country: None (occurrence: None)
  Receive Date: 20100505
  Receipt Date: 20100430
  Transmission Date: 20101027
  Serious: Yes (Death)
  Sender: FDA-Public Use
  Company Number: AU-SANOFI-AVENTIS-2010SA022889

PATIENT
  Age: 77 Year
  Sex: Male

DRUGS (1)
  1. RILUZOLE [Suspect]
     Indication: MOTOR NEURONE DISEASE
     Route: 048
     Dates: start: 20070901, end: 20100401

REACTIONS (1)
  - DISEASE PROGRESSION [None]
